FAERS Safety Report 4613350-0 (Version None)
Quarter: 2005Q1

REPORT INFORMATION
  Report Type: 
  Country: None (occurrence: None)
  Receive Date: 20050316
  Receipt Date: 20050307
  Transmission Date: 20050727
  Serious: Yes (Hospitalization)
  Sender: FDA-Public Use
  Company Number: 2005040326

PATIENT
  Age: 60 Year
  Sex: Female

DRUGS (3)
  1. VALDECOXIB [Suspect]
     Indication: RHEUMATOID ARTHRITIS
     Dosage: 20 MG (20 MG, 1 IN 1 D), ORAL
     Route: 048
     Dates: start: 20050106, end: 20050111
  2. INDAPAMIDE [Concomitant]
  3. ROFECOXIB [Concomitant]

REACTIONS (6)
  - ERYTHEMA MULTIFORME [None]
  - GENITAL DISORDER FEMALE [None]
  - HYPOTENSION [None]
  - NECROSIS [None]
  - STEVENS-JOHNSON SYNDROME [None]
  - VASCULITIS [None]
